FAERS Safety Report 6135408-X (Version None)
Quarter: 2009Q1

REPORT INFORMATION
  Report Type: 
  Country: None (occurrence: None)
  Receive Date: 20090327
  Receipt Date: 20090323
  Transmission Date: 20090719
  Serious: Yes (Other)
  Sender: FDA-Public Use
  Company Number: IT-GILEAD-2009-0021056

PATIENT
  Sex: Male

DRUGS (1)
  1. ATRIPLA [Suspect]
     Indication: HIV INFECTION
     Route: 048
     Dates: start: 20090228, end: 20090313

REACTIONS (2)
  - ANGIOEDEMA [None]
  - RASH [None]
